FAERS Safety Report 23507496 (Version 2)
Quarter: 2024Q2

REPORT INFORMATION
  Report Type: Spontaneous
  Country: US (occurrence: US)
  Receive Date: 20240209
  Receipt Date: 20240508
  Transmission Date: 20240716
  Serious: No
  Sender: FDA-Public Use
  Company Number: US-SA-SAC20240205001528

PATIENT
  Sex: Female

DRUGS (1)
  1. DUPIXENT [Suspect]
     Active Substance: DUPILUMAB
     Indication: Dermatitis atopic
     Dosage: 300 MG, QOW
     Route: 058
     Dates: start: 20190319

REACTIONS (4)
  - COVID-19 [Recovering/Resolving]
  - Respiratory tract congestion [Recovering/Resolving]
  - Pain in extremity [Unknown]
  - Sinus operation [Recovering/Resolving]
